FAERS Safety Report 5369787-8 (Version None)
Quarter: 2007Q2

REPORT INFORMATION
  Report Type: 
  Country: None (occurrence: None)
  Receive Date: 20070621
  Receipt Date: 20070613
  Transmission Date: 20071010
  Serious: Yes (Hospitalization, Other)
  Sender: FDA-Public Use
  Company Number: 163-21880-07060752

PATIENT
  Age: 79 Year
  Sex: Male

DRUGS (11)
  1. REVLIMID [Suspect]
     Indication: MULTIPLE MYELOMA
     Dosage: 15 MG, DAILY, 21D/28D, ORAL
     Route: 048
     Dates: start: 20070106, end: 20070301
  2. REVLIMID [Suspect]
     Indication: MULTIPLE MYELOMA
     Dosage: 15 MG, DAILY, 21D/28D, ORAL
     Route: 048
     Dates: start: 20070420
  3. DEXAMETHASONE [Suspect]
     Indication: MULTIPLE MYELOMA
     Dosage: 40 MG, 10 IN 10 1 D, ORAL
     Route: 048
     Dates: start: 20070106
  4. QUININE SULFATE [Concomitant]
  5. VERAPAMIL [Concomitant]
  6. HYDROCHLOROTHIAZIDE (HYDROCHOROTHIAZIDE) [Concomitant]
  7. OMEPRAZOLE [Concomitant]
  8. ALBUTEROL (SALBUMATOL) [Concomitant]
  9. OVAR (BECLOMETASONE DIPROPIONATE) [Concomitant]
  10. COZAAR [Concomitant]
  11. CASODEX [Concomitant]

REACTIONS (7)
  - ABSCESS LIMB [None]
  - HAEMATOCRIT DECREASED [None]
  - HAEMOGLOBIN DECREASED [None]
  - LYMPHANGITIS [None]
  - NOCARDIOSIS [None]
  - RED BLOOD CELL COUNT DECREASED [None]
  - WHITE BLOOD CELL COUNT DECREASED [None]
